FAERS Safety Report 7681213-2 (Version None)
Quarter: 2011Q3

REPORT INFORMATION
  Report Type: 
  Country: None (occurrence: None)
  Receive Date: 20110812
  Receipt Date: 20110803
  Transmission Date: 20111222
  Serious: Yes (Hospitalization, Other)
  Sender: FDA-Public Use
  Company Number: US-ELI_LILLY_AND_COMPANY-US201107001506

PATIENT
  Sex: Female

DRUGS (11)
  1. LEVOXYL [Concomitant]
     Dosage: 50 UG, QD
     Route: 048
  2. BYETTA [Suspect]
     Dosage: 10 UG, BID
     Route: 058
     Dates: start: 20081024
  3. TRIAMTERENE AND HYDROCHLOROTHIAZID [Concomitant]
     Dosage: UNK UNK, QD
     Route: 048
  4. PLAVIX [Concomitant]
     Dosage: 75 MG, UNK
     Route: 048
  5. ENTERIC ASPIRIN [Concomitant]
     Dosage: 81 MG, QD
  6. METFORMIN HCL [Concomitant]
     Indication: TYPE 2 DIABETES MELLITUS
     Dosage: 1000 MG, BID
  7. TRAMADOL HCL [Concomitant]
     Dosage: UNK, TID
     Route: 048
  8. BYETTA [Suspect]
     Indication: TYPE 2 DIABETES MELLITUS
     Dosage: 5 UG, BID
     Route: 058
     Dates: start: 20080422, end: 20080929
  9. LISINOPRIL [Concomitant]
     Dosage: 10 MG, QD
     Route: 048
  10. NEXIUM [Concomitant]
     Dosage: 40 MG, QD
     Route: 048
  11. CRESTOR [Concomitant]
     Dosage: UNK

REACTIONS (17)
  - BACK DISORDER [None]
  - DECREASED APPETITE [None]
  - NAUSEA [None]
  - OFF LABEL USE [None]
  - TRANSIENT ISCHAEMIC ATTACK [None]
  - BLOOD GLUCOSE INCREASED [None]
  - GLYCOSYLATED HAEMOGLOBIN INCREASED [None]
  - DIARRHOEA [None]
  - MUSCLE SPASMS [None]
  - WEIGHT DECREASED [None]
  - APHASIA [None]
  - ORAL DISORDER [None]
  - URINARY TRACT INFECTION [None]
  - FAECAL INCONTINENCE [None]
  - HEPATIC STEATOSIS [None]
  - VISUAL FIELD DEFECT [None]
  - GASTRITIS [None]
